FAERS Safety Report 14002423 (Version 2)
Quarter: 2017Q4

REPORT INFORMATION
  Report Type: Spontaneous
  Country: US (occurrence: US)
  Receive Date: 20170922
  Receipt Date: 20171121
  Transmission Date: 20180321
  Serious: Yes (Death, Hospitalization)
  Sender: FDA-Public Use
  Company Number: US-JNJFOC-20170820604

PATIENT
  Age: 85 Year
  Sex: Female
  Weight: 59.42 kg

DRUGS (1)
  1. XARELTO [Suspect]
     Active Substance: RIVAROXABAN
     Indication: DEEP VEIN THROMBOSIS
     Route: 048
     Dates: end: 20170128

REACTIONS (1)
  - Diverticulum intestinal haemorrhagic [Fatal]

NARRATIVE: CASE EVENT DATE: 20170126
